FAERS Safety Report 19154047 (Version 1)
Quarter: 2021Q2

REPORT INFORMATION
  Report Type: Spontaneous
  Country: GB (occurrence: GB)
  Receive Date: 20210419
  Receipt Date: 20210419
  Transmission Date: 20210717
  Serious: Yes (Other)
  Sender: FDA-Public Use
  Company Number: NVSC2021GB079811

PATIENT
  Age: 62 Year
  Sex: Female
  Weight: 53 kg

DRUGS (1)
  1. LETROZOLE. [Suspect]
     Active Substance: LETROZOLE
     Indication: BREAST CANCER
     Dosage: 2.5 MG
     Route: 048
     Dates: start: 202009, end: 202101

REACTIONS (2)
  - Product substitution issue [Unknown]
  - Tinnitus [Recovering/Resolving]

NARRATIVE: CASE EVENT DATE: 202009
